FAERS Safety Report 6688909-X (Version None)
Quarter: 2010Q2

REPORT INFORMATION
  Report Type: 
  Country: None (occurrence: None)
  Receive Date: 20100420
  Receipt Date: 20100322
  Transmission Date: 20101027
  Serious: Yes (Death, Life-Threatening, Other)
  Sender: FDA-Public Use
  Company Number: US-BAXTER-2008BH010990

PATIENT
  Age: 53 Year
  Sex: Male
  Weight: 73 kg

DRUGS (33)
  1. HEPARIN SODIUM INJECTION [Suspect]
     Indication: THROMBOSIS PROPHYLAXIS
     Route: 010
     Dates: start: 20050225, end: 20080401
  2. HEPARIN SODIUM INJECTION [Suspect]
     Route: 042
     Dates: start: 20080129
  3. HEPARIN SODIUM INJECTION [Suspect]
     Route: 042
     Dates: start: 20070915, end: 20080422
  4. HEPARIN SODIUM INJECTION [Suspect]
     Route: 042
     Dates: start: 20070915, end: 20080422
  5. HEPARIN SODIUM INJECTION [Suspect]
     Route: 042
     Dates: start: 20070915, end: 20080422
  6. HEPARIN SODIUM INJECTION [Suspect]
     Route: 042
     Dates: start: 20070915, end: 20080422
  7. HEPARIN SODIUM INJECTION [Suspect]
     Route: 042
     Dates: start: 20070915, end: 20080422
  8. HEPARIN SODIUM INJECTION [Suspect]
     Route: 042
     Dates: start: 20070915, end: 20080422
  9. HEPARIN SODIUM INJECTION [Suspect]
     Route: 042
     Dates: start: 20070915, end: 20080422
  10. TRAMADOL HCL [Concomitant]
     Indication: PAIN
     Route: 048
  11. HUMALOG [Concomitant]
     Indication: DRUG USE FOR UNKNOWN INDICATION
     Route: 058
  12. PHOSLO [Concomitant]
     Indication: DRUG USE FOR UNKNOWN INDICATION
     Route: 048
  13. PRILOSEC [Concomitant]
     Indication: DRUG USE FOR UNKNOWN INDICATION
     Route: 048
  14. REGLAN [Concomitant]
     Indication: DRUG USE FOR UNKNOWN INDICATION
     Route: 048
  15. FOSRENOL [Concomitant]
     Indication: BLOOD PHOSPHORUS INCREASED
     Route: 048
  16. WARFARIN SODIUM [Concomitant]
     Indication: ANTICOAGULANT THERAPY
     Route: 048
  17. WARFARIN SODIUM [Concomitant]
     Indication: DRUG USE FOR UNKNOWN INDICATION
     Route: 048
  18. JANUVIA [Concomitant]
     Indication: DIABETES MELLITUS
     Route: 048
  19. GLUCERNA WITH PROTEIN POWDER [Concomitant]
     Indication: MEDICAL DIET
     Route: 048
  20. COREG [Concomitant]
     Indication: HYPERTENSION
     Route: 048
  21. SIMVASTATIN [Concomitant]
     Indication: HYPERCHOLESTEROLAEMIA
     Route: 048
  22. ZETIA [Concomitant]
     Indication: HYPERCHOLESTEROLAEMIA
     Route: 048
  23. AVANDIA [Concomitant]
     Indication: DIABETES MELLITUS
     Route: 048
  24. DULCOLAX [Concomitant]
     Indication: CONSTIPATION
     Route: 054
  25. GUAIFENESIN [Concomitant]
     Indication: DRUG USE FOR UNKNOWN INDICATION
     Route: 048
  26. LOPERAMIDE [Concomitant]
     Indication: DRUG USE FOR UNKNOWN INDICATION
     Route: 048
  27. CLONIDINE [Concomitant]
     Indication: DRUG USE FOR UNKNOWN INDICATION
     Route: 048
  28. DIPHENHYDRAMINE HYDROCHLORIDE [Concomitant]
     Indication: DRUG USE FOR UNKNOWN INDICATION
     Route: 048
  29. HUMULIN R [Concomitant]
     Indication: DIABETES MELLITUS
     Route: 058
  30. PRILOSEC [Concomitant]
     Indication: GASTROOESOPHAGEAL REFLUX DISEASE
     Route: 048
  31. PHOSLO [Concomitant]
     Indication: BLOOD PHOSPHORUS INCREASED
     Route: 048
  32. PROTEIN SUPPLEMENTS [Concomitant]
     Indication: MEDICAL DIET
     Route: 048
  33. EPOGEN [Concomitant]
     Indication: ANAEMIA
     Route: 042

REACTIONS (10)
  - ANOXIC ENCEPHALOPATHY [None]
  - BRAIN INJURY [None]
  - CARDIAC ARREST [None]
  - HYPOTENSION [None]
  - LOSS OF CONSCIOUSNESS [None]
  - PYREXIA [None]
  - RESPIRATORY FAILURE [None]
  - SEPSIS [None]
  - UNRESPONSIVE TO STIMULI [None]
  - URINARY TRACT INFECTION [None]
